FAERS Safety Report 14371706 (Version 2)
Quarter: 2018Q2

REPORT INFORMATION
  Report Type: Spontaneous
  Country: US (occurrence: US)
  Receive Date: 20180110
  Receipt Date: 20180511
  Transmission Date: 20180711
  Serious: Yes (Other)
  Sender: FDA-Public Use
  Company Number: US-BAYER-2018-004838

PATIENT

DRUGS (1)
  1. MAGNEVIST [Suspect]
     Active Substance: GADOPENTETATE DIMEGLUMINE

REACTIONS (12)
  - Fatigue [None]
  - Anxiety [Not Recovered/Not Resolved]
  - Emotional distress [Not Recovered/Not Resolved]
  - Gadolinium deposition disease [None]
  - Anaemia [None]
  - Injury [None]
  - Hypoaesthesia [None]
  - Restless legs syndrome [None]
  - Amnesia [None]
  - Cognitive disorder [None]
  - Paraesthesia [None]
  - Pain [None]
